FAERS Safety Report 6117217-0 (Version None)
Quarter: 2009Q1

REPORT INFORMATION
  Report Type: 
  Country: None (occurrence: None)
  Receive Date: 20090314
  Receipt Date: 20090105
  Transmission Date: 20090719
  Serious: No
  Sender: FDA-Public Use
  Company Number: US-ABBOTT-09P-163-0496100-00

PATIENT
  Sex: Female
  Weight: 57.658 kg

DRUGS (6)
  1. HUMIRA [Suspect]
     Indication: RHEUMATOID ARTHRITIS
     Route: 058
     Dates: start: 20061204
  2. PREDNISONE [Concomitant]
     Indication: DRUG USE FOR UNKNOWN INDICATION
     Route: 048
     Dates: start: 19940101, end: 20081201
  3. PREDNISONE [Concomitant]
     Route: 048
     Dates: start: 20081201
  4. PREDNISONE [Concomitant]
     Route: 048
     Dates: start: 20081201
  5. UNNAMED BLOOD PRESSURE MEDICATION [Concomitant]
     Indication: HYPERTENSION
  6. UNNAMED CHOLESTEROL MEDICATION [Concomitant]
     Indication: BLOOD CHOLESTEROL INCREASED

REACTIONS (3)
  - ARTHRITIS [None]
  - FALL [None]
  - PAIN [None]
